FAERS Safety Report 9163037 (Version 3)
Quarter: 2013Q2

REPORT INFORMATION
  Report Type: Spontaneous
  Country: US (occurrence: US)
  Receive Date: 20130314
  Receipt Date: 20130415
  Transmission Date: 20140414
  Serious: Yes (Other)
  Sender: FDA-Public Use
  Company Number: US-BAXTER-2013BAX009060

PATIENT
  Age: 14 Year
  Sex: Male

DRUGS (5)
  1. FEIBA NF [Suspect]
     Indication: HAEMORRHAGE
     Dosage: 1,032 UNITS
     Route: 065
     Dates: start: 20130301, end: 20130301
  2. FEIBA NF [Suspect]
     Indication: FACTOR VIII INHIBITION
     Dosage: 2,846 UNITS
     Route: 065
     Dates: start: 20130301, end: 20130301
  3. FEIBA NF [Suspect]
     Indication: PROPHYLAXIS
  4. NOVOSEVEN [Suspect]
     Indication: HAEMORRHAGE
     Route: 065
  5. NOVOSEVEN [Suspect]
     Indication: PROPHYLAXIS

REACTIONS (4)
  - Swelling face [Unknown]
  - Throat irritation [Unknown]
  - Glomerulonephritis [Unknown]
  - Haematuria [Recovering/Resolving]
